FAERS Safety Report 17975904 (Version 2)
Quarter: 2020Q3

REPORT INFORMATION
  Report Type: Spontaneous
  Country: US (occurrence: US)
  Receive Date: 20200702
  Receipt Date: 20200723
  Transmission Date: 20201103
  Serious: No
  Sender: FDA-Public Use
  Company Number: US-JNJFOC-20200636357

PATIENT
  Age: 7 Decade
  Sex: Female
  Weight: 49.94 kg

DRUGS (1)
  1. WOMENS ROGAINE UNSCENTED [Suspect]
     Active Substance: MINOXIDIL
     Indication: ALOPECIA
     Dosage: ABOUT HALF A CAP FULL AND ONCE DAILY
     Route: 061
     Dates: start: 2020, end: 202006

REACTIONS (3)
  - Expired product administered [Unknown]
  - Incorrect dose administered [Unknown]
  - Product container issue [Unknown]

NARRATIVE: CASE EVENT DATE: 2020
